FAERS Safety Report 24251020 (Version 1)
Quarter: 2024Q3

REPORT INFORMATION
  Report Type: Spontaneous
  Country: US (occurrence: None)
  Receive Date: 20240825
  Receipt Date: 20240825
  Transmission Date: 20241016
  Serious: Yes (unspecified)
  Sender: Public
  Company Number: None

PATIENT
  Age: 38 Year
  Sex: Female
  Weight: 74.7 kg

DRUGS (1)
  1. ZEPBOUND [Suspect]
     Active Substance: TIRZEPATIDE
     Indication: Weight decreased
     Dates: start: 20240502, end: 20240515

REACTIONS (5)
  - Brain fog [None]
  - Headache [None]
  - Muscular weakness [None]
  - Tachycardia [None]
  - Anxiety [None]

NARRATIVE: CASE EVENT DATE: 20240515
